FAERS Safety Report 8610972-7 (Version None)
Quarter: 2012Q3

REPORT INFORMATION
  Report Type: 
  Country: None (occurrence: None)
  Receive Date: 20120808
  Receipt Date: 20120725
  Transmission Date: 20120928
  Serious: Yes (Death)
  Sender: FDA-Public Use
  Company Number: 2012MA009112

PATIENT
  Age: 51 Year
  Sex: Male
  Weight: 84.8226 kg

DRUGS (3)
  1. KADIAN [Suspect]
     Indication: INTENTIONAL DRUG MISUSE
  2. LAMOTRIGINE [Suspect]
  3. ETHANOL [Suspect]

REACTIONS (6)
  - UNRESPONSIVE TO STIMULI [None]
  - OEDEMA PERIPHERAL [None]
  - CONTUSION [None]
  - INTENTIONAL DRUG MISUSE [None]
  - TOXICITY TO VARIOUS AGENTS [None]
  - ACCIDENTAL DEATH [None]
